FAERS Safety Report 4382884-9 (Version None)
Quarter: 2004Q2

REPORT INFORMATION
  Report Type: 
  Country: None (occurrence: None)
  Receive Date: 20040602
  Receipt Date: 20031001
  Transmission Date: 20050107
  Serious: Yes (Other)
  Sender: FDA-Public Use
  Company Number: NSADSS2002026681

PATIENT
  Age: 51 Year
  Sex: Female
  Weight: 115.6672 kg

DRUGS (13)
  1. PROPULSID [Suspect]
     Indication: EATING DISORDER
     Dosage: 20 MG, ORAL
     Route: 048
     Dates: start: 19980226, end: 20000630
  2. PROPULSID [Suspect]
     Indication: EATING DISORDER
     Dosage: 20 MG, ORAL
     Route: 048
     Dates: start: 19970402
  3. PROPULSID [Suspect]
     Indication: EATING DISORDER
     Dosage: 20, ORAL
     Route: 048
     Dates: start: 19990912
  4. RELAFEN [Concomitant]
  5. PROPOXIN (DEXTROPROPOXYPHENE NAPSILATE) [Concomitant]
  6. ALLEGRA [Concomitant]
  7. PREMARIN [Concomitant]
  8. LEVSIN (HYOSCYAMINE SULFATE) [Concomitant]
  9. AMITRIPTYLINE HCL [Concomitant]
  10. METHYLPREDNISOLONE [Concomitant]
  11. LANOXIN [Concomitant]
  12. CIPROFLOXACIN [Concomitant]
  13. FUROSEMIDE [Concomitant]

REACTIONS (12)
  - CARDIAC DISORDER [None]
  - CARDIAC FAILURE CONGESTIVE [None]
  - CARDIAC VALVE DISEASE [None]
  - CHEST PAIN [None]
  - CONVULSION [None]
  - DEPRESSION [None]
  - ELECTROCARDIOGRAM QT PROLONGED [None]
  - HEART RATE IRREGULAR [None]
  - HYPOAESTHESIA [None]
  - METRORRHAGIA [None]
  - MYALGIA [None]
  - SINUS TACHYCARDIA [None]
